FAERS Safety Report 24409827 (Version 2)
Quarter: 2024Q4

REPORT INFORMATION
  Report Type: Spontaneous
  Country: JP (occurrence: JP)
  Receive Date: 20241008
  Receipt Date: 20241016
  Transmission Date: 20250114
  Serious: Yes (Other)
  Sender: SANDOZ
  Company Number: JP-002147023-NVSJ2024JP011653

PATIENT
  Age: 71 Year
  Sex: Male
  Weight: 64 kg

DRUGS (6)
  1. ZOLEDRONIC ACID [Suspect]
     Active Substance: ZOLEDRONIC ACID
     Indication: Gastric cancer
     Dosage: UNK
     Route: 065
     Dates: start: 201601
  2. ZOLEDRONIC ACID [Suspect]
     Active Substance: ZOLEDRONIC ACID
     Indication: Metastases to bone
  3. TS-1 [Concomitant]
     Active Substance: GIMERACIL\OTERACIL POTASSIUM\TEGAFUR
     Indication: Gastric cancer
     Dosage: UNK
     Route: 048
  4. TS-1 [Concomitant]
     Active Substance: GIMERACIL\OTERACIL POTASSIUM\TEGAFUR
     Dosage: UNK, 1 WEEK ON, 3 WEEKS OFF
     Route: 048
  5. TS-1 [Concomitant]
     Active Substance: GIMERACIL\OTERACIL POTASSIUM\TEGAFUR
     Indication: Metastases to bone
     Dosage: UNK, 2 WEEKS ON, 2 WEEKS OFF
     Route: 048
  6. TS-1 [Concomitant]
     Active Substance: GIMERACIL\OTERACIL POTASSIUM\TEGAFUR
     Dosage: UNK, 2 WEEKS ON, 2 WEEKS OFF
     Route: 048

REACTIONS (1)
  - Blood alkaline phosphatase increased [Not Recovered/Not Resolved]
